FAERS Safety Report 20738629 (Version 1)
Quarter: 2022Q2

REPORT INFORMATION
  Report Type: Spontaneous
  Country: US (occurrence: None)
  Receive Date: 20220421
  Receipt Date: 20220421
  Transmission Date: 20220721
  Serious: No
  Sender: FDA-Public Use
  Company Number: None

PATIENT
  Age: 64 Year
  Sex: Male
  Weight: 60.78 kg

DRUGS (8)
  1. ABIRATERONE [Suspect]
     Active Substance: ABIRATERONE
     Indication: Prostate cancer
     Dosage: FREQUENCY : DAILY;?
     Dates: start: 202109, end: 202204
  2. CLONAZEPAM [Concomitant]
     Active Substance: CLONAZEPAM
  3. clonidine HCI [Concomitant]
  4. LUPRON DEPOT [Concomitant]
     Active Substance: LEUPROLIDE ACETATE
  5. MORPHINE SULFATE [Concomitant]
     Active Substance: MORPHINE SULFATE
  6. MORPHINE SULFATE [Concomitant]
     Active Substance: MORPHINE SULFATE
  7. TEMAZEPAM [Concomitant]
     Active Substance: TEMAZEPAM
  8. Venlafaxine HCI [Concomitant]

REACTIONS (2)
  - Prostatic specific antigen increased [None]
  - Drug ineffective [None]
